FAERS Safety Report 6647722-X (Version None)
Quarter: 2010Q1

REPORT INFORMATION
  Report Type: 
  Country: None (occurrence: None)
  Receive Date: 20100323
  Receipt Date: 20100323
  Transmission Date: 20100710
  Serious: No
  Sender: FDA-Public Use
  Company Number: None

PATIENT
  Age: 5 Year
  Sex: Male

DRUGS (1)
  1. LOVENOX [Suspect]
     Dosage: 120MG BID SQ
     Route: 058

REACTIONS (3)
  - DRUG PRESCRIBING ERROR [None]
  - INTERCEPTED MEDICATION ERROR [None]
  - MEDICATION ERROR [None]
